FAERS Safety Report 4607773-3 (Version None)
Quarter: 2005Q1

REPORT INFORMATION
  Report Type: 
  Country: None (occurrence: None)
  Receive Date: 20050314
  Receipt Date: 20050307
  Transmission Date: 20050727
  Serious: Yes (Hospitalization, Other)
  Sender: FDA-Public Use
  Company Number: IT-GLAXOSMITHKLINE-B0374008A

PATIENT
  Age: 59 Year
  Sex: Male

DRUGS (4)
  1. LAMIVUDINE [Suspect]
     Indication: HEPATITIS B
     Dosage: 100MG PER DAY
     Route: 048
  2. HEPATITIS B IMMUNE GLOBULIN (HUMAN) [Concomitant]
     Dosage: 10000UNIT PER DAY
     Route: 042
  3. CYCLOSPORINE [Concomitant]
     Indication: IMMUNOSUPPRESSION
  4. STEROIDS [Concomitant]
     Indication: IMMUNOSUPPRESSION

REACTIONS (4)
  - HAEMATURIA [None]
  - HYPERKALAEMIA [None]
  - LIVER FUNCTION TEST ABNORMAL [None]
  - RHABDOMYOLYSIS [None]
